FAERS Safety Report 10230103 (Version 1)
Quarter: 2014Q2

REPORT INFORMATION
  Report Type: Spontaneous
  Country: SE (occurrence: None)
  Receive Date: 20140609
  Receipt Date: 20140609
  Transmission Date: 20141212
  Serious: Yes (Hospitalization)
  Sender: FDA-Public Use
  Company Number: 2014147237

PATIENT
  Age: 50 Year
  Sex: Male

DRUGS (5)
  1. FRAGMIN [Suspect]
     Indication: PULMONARY EMBOLISM
     Route: 058
     Dates: start: 20140423, end: 20140428
  2. WARFARIN SODIUM [Suspect]
     Indication: PULMONARY EMBOLISM
     Route: 048
     Dates: start: 20140424, end: 20140509
  3. OXYCONTIN (OXYCODONE HYDROCHLORIDE) [Concomitant]
  4. OXYNORM (OXYCODONE HYDROCHLORIDE) [Concomitant]
  5. ALVEDON FORTE (PARACETAMOL) [Concomitant]

REACTIONS (1)
  - Stevens-Johnson syndrome [None]
